FAERS Safety Report 4496147-4 (Version None)
Quarter: 2004Q4

REPORT INFORMATION
  Report Type: 
  Country: None (occurrence: None)
  Receive Date: 20041108
  Receipt Date: 20041108
  Transmission Date: 20050328
  Serious: Yes (Life-Threatening)
  Sender: FDA-Public Use
  Company Number: None

PATIENT
  Age: 57 Year
  Sex: Female
  Weight: 104 kg

DRUGS (1)
  1. NEUMEGA [Suspect]
     Indication: THROMBOCYTOPENIA
     Dosage: 5 MG QD SC
     Route: 058
     Dates: start: 20041028, end: 20041101

REACTIONS (3)
  - BRADYCARDIA [None]
  - VENTRICULAR EXTRASYSTOLES [None]
  - VENTRICULAR FIBRILLATION [None]
